FAERS Safety Report 6266467-1 (Version None)
Quarter: 2009Q3

REPORT INFORMATION
  Report Type: 
  Country: None (occurrence: None)
  Receive Date: 20090710
  Receipt Date: 20090630
  Transmission Date: 20100115
  Serious: Yes (Other)
  Sender: FDA-Public Use
  Company Number: GXKR2009GB07511

PATIENT
  Age: 48 Year
  Sex: Male
  Weight: 171 kg

DRUGS (4)
  1. DOXYCYCLINE HYCLATE [Suspect]
     Indication: ROSACEA
     Dosage: 100 MG, QD, ORAL
     Route: 048
     Dates: start: 20090501, end: 20090519
  2. SALBUTAMOL (SALBUTAMOL) [Concomitant]
  3. FLUTICASONE PROPIONATE W/SALMETEROL [Concomitant]
  4. XINAFOATE (FLUTICASONE PROPIONATE, SALMETEROL XINAFOATE) [Concomitant]

REACTIONS (4)
  - APPETITE DISORDER [None]
  - NOCTURIA [None]
  - ORAL CANDIDIASIS [None]
  - TYPE 2 DIABETES MELLITUS [None]
